FAERS Safety Report 10579349 (Version 2)
Quarter: 2014Q4

REPORT INFORMATION
  Report Type: Spontaneous
  Country: JP (occurrence: JP)
  Receive Date: 20141112
  Receipt Date: 20141112
  Transmission Date: 20150529
  Serious: Yes (Hospitalization)
  Sender: FDA-Public Use
  Company Number: JP-KOWA-2014S1001227

PATIENT
  Age: 79 Year
  Sex: Male
  Weight: 42 kg

DRUGS (10)
  1. TS-1 [Suspect]
     Active Substance: GIMERACIL\OTERACIL\TEGAFUR
     Indication: RECTAL CANCER
     Route: 048
     Dates: end: 201207
  2. SELBEX [Suspect]
     Active Substance: TEPRENONE
     Route: 048
     Dates: end: 201207
  3. DORNER [Suspect]
     Active Substance: BERAPROST SODIUM
     Route: 048
     Dates: end: 201207
  4. FRANDOL [Suspect]
     Active Substance: ISOSORBIDE DINITRATE
     Dates: end: 201207
  5. LIVALO [Suspect]
     Active Substance: PITAVASTATIN CALCIUM
     Route: 048
     Dates: end: 201207
  6. ANPLAG [Suspect]
     Active Substance: SARPOGRELATE
     Route: 048
     Dates: end: 201207
  7. AMLODIN [Suspect]
     Active Substance: AMLODIPINE BESYLATE
     Route: 048
     Dates: end: 201207
  8. COVERSYL /00790702/ [Suspect]
     Active Substance: PERINDOPRIL
     Route: 048
     Dates: end: 201207
  9. ARTIST [Suspect]
     Active Substance: CARVEDILOL
     Route: 048
     Dates: end: 201207
  10. TOUGHMAC E [Suspect]
     Active Substance: AMYLASE\LIPASE\PROTEASE
     Route: 048
     Dates: end: 201207

REACTIONS (1)
  - Drug eruption [Recovering/Resolving]

NARRATIVE: CASE EVENT DATE: 201207
